FAERS Safety Report 8848936 (Version 3)
Quarter: 2013Q1

REPORT INFORMATION
  Report Type: Report from Study
  Country: US (occurrence: US)
  Receive Date: 20121018
  Receipt Date: 20130227
  Transmission Date: 20140127
  Serious: Yes (Death)
  Sender: FDA-Public Use
  Company Number: US-ABBOTT-12P-163-0996428-00

PATIENT
  Age: 45 Year
  Sex: Male

DRUGS (1)
  1. HUMIRA PEN [Suspect]
     Indication: ANKYLOSING SPONDYLITIS
     Route: 058
     Dates: start: 201109, end: 20121001

REACTIONS (7)
  - Cholecystitis [Fatal]
  - Septic shock [Fatal]
  - Clostridial infection [Fatal]
  - Abdominal pain upper [Fatal]
  - Arterial rupture [Fatal]
  - Blood pressure decreased [Fatal]
  - Cardiac arrest [Fatal]
